FAERS Safety Report 5636009-X (Version None)
Quarter: 2008Q1

REPORT INFORMATION
  Report Type: 
  Country: None (occurrence: None)
  Receive Date: 20080220
  Receipt Date: 20080220
  Transmission Date: 20080703
  Serious: Yes (Hospitalization)
  Sender: FDA-Public Use
  Company Number: None

PATIENT
  Sex: Male
  Weight: 68.0396 kg

DRUGS (1)
  1. CHANTIX [Suspect]
     Indication: NICOTINE DEPENDENCE
     Dosage: 40-60MG  ONCE  PO
     Route: 048
     Dates: start: 20080209, end: 20080209

REACTIONS (7)
  - DEPRESSION [None]
  - HALLUCINATION, AUDITORY [None]
  - IDEAS OF REFERENCE [None]
  - MEDICATION ERROR [None]
  - OVERDOSE [None]
  - PARANOIA [None]
  - REFUSAL OF TREATMENT BY PATIENT [None]
